FAERS Safety Report 6252476-5 (Version None)
Quarter: 2009Q2

REPORT INFORMATION
  Report Type: 
  Country: None (occurrence: None)
  Receive Date: 20090629
  Receipt Date: 20090629
  Transmission Date: 20091009
  Serious: Yes (Life-Threatening)
  Sender: FDA-Public Use
  Company Number: None

PATIENT
  Age: 67 Year
  Sex: Female

DRUGS (1)
  1. LEXISCAN [Suspect]
     Indication: CARDIAC STRESS TEST
     Dosage: IV BOLUS ONE TIME ONLY
     Route: 040

REACTIONS (3)
  - DROOLING [None]
  - HYPERHIDROSIS [None]
  - UNRESPONSIVE TO STIMULI [None]
